FAERS Safety Report 24624849 (Version 3)
Quarter: 2024Q4

REPORT INFORMATION
  Report Type: Spontaneous
  Country: DE (occurrence: DE)
  Receive Date: 20241115
  Receipt Date: 20241213
  Transmission Date: 20250115
  Serious: Yes (Death, Life-Threatening, Hospitalization, Other)
  Sender: ABBVIE
  Company Number: DE-BRISTOL-MYERS SQUIBB COMPANY-BMS-2019-121939

PATIENT
  Sex: Female
  Weight: 52 kg

DRUGS (33)
  1. LEVOTHYROXINE SODIUM [Suspect]
     Active Substance: LEVOTHYROXINE SODIUM
     Indication: Systemic lupus erythematosus
     Route: 048
  2. FLUVASTATIN [Suspect]
     Active Substance: FLUVASTATIN SODIUM
     Indication: Systemic lupus erythematosus
     Dosage: UNK, 1X/DAY
     Route: 065
  3. FLUVASTATIN [Suspect]
     Active Substance: FLUVASTATIN SODIUM
     Indication: Systemic lupus erythematosus
     Dosage: 1 DF, QD (20)
     Route: 065
  4. Sab simplex [Concomitant]
     Indication: Product used for unknown indication
     Dosage: 30GTT TO 3X/D
     Route: 065
  5. CHOLECALCIFEROL [Concomitant]
     Active Substance: CHOLECALCIFEROL
     Indication: Product used for unknown indication
     Dosage: UNK, WEEKLY
     Route: 065
  6. METOCLOPRAMIDE HYDROCHLORIDE [Concomitant]
     Active Substance: METOCLOPRAMIDE HYDROCHLORIDE
     Indication: Product used for unknown indication
     Dosage: 3 DF, QD ( TID 10)
     Route: 065
  7. UMECLIDINIUM BROMIDE\VILANTEROL TRIFENATATE [Concomitant]
     Active Substance: UMECLIDINIUM BROMIDE\VILANTEROL TRIFENATATE
     Indication: Product used for unknown indication
     Dosage: UNK, 55/221 PUSH
     Route: 050
  8. AZATHIOPRINE [Suspect]
     Active Substance: AZATHIOPRINE
     Indication: White blood cell count decreased
     Dosage: 50 MILLIGRAM
     Route: 065
     Dates: start: 201906, end: 201907
  9. AZATHIOPRINE [Suspect]
     Active Substance: AZATHIOPRINE
     Indication: White blood cell count decreased
     Dosage: 50 MILLIGRAM
     Route: 065
     Dates: start: 20100419, end: 201904
  10. AZATHIOPRINE [Suspect]
     Active Substance: AZATHIOPRINE
     Indication: White blood cell count decreased
     Route: 065
     Dates: start: 1997, end: 2008
  11. MORPHINE [Concomitant]
     Active Substance: MORPHINE
     Indication: Product used for unknown indication
     Dosage: 30, 2X/DAY
     Route: 065
  12. EZETIMIBE [Concomitant]
     Active Substance: EZETIMIBE
     Indication: Product used for unknown indication
     Dosage: UNK, 1X/DAY
     Route: 065
  13. ACYCLOVIR [Suspect]
     Active Substance: ACYCLOVIR
     Indication: Systemic lupus erythematosus
     Dosage: 400 MG, TID
     Route: 065
  14. ACYCLOVIR [Suspect]
     Active Substance: ACYCLOVIR
     Indication: Systemic lupus erythematosus
     Dosage: 1200 MG, QD
     Route: 065
  15. ACYCLOVIR [Suspect]
     Active Substance: ACYCLOVIR
     Indication: Systemic lupus erythematosus
     Dosage: 400 MILLIGRAM, QD
     Route: 065
  16. ACYCLOVIR [Suspect]
     Active Substance: ACYCLOVIR
     Indication: Systemic lupus erythematosus
     Dosage: 400 MG, 3X/DAY
     Route: 065
  17. ACYCLOVIR [Suspect]
     Active Substance: ACYCLOVIR
     Indication: Systemic lupus erythematosus
     Dosage: 1200 MILLIGRAM, QD
     Route: 065
  18. NITRENDIPINE [Concomitant]
     Active Substance: NITRENDIPINE
     Indication: Product used for unknown indication
     Dosage: UNK
     Route: 065
  19. ISDN [Concomitant]
     Indication: Product used for unknown indication
     Dosage: UNK, 2X/DAY
     Route: 065
  20. ELIQUIS [Suspect]
     Active Substance: APIXABAN
     Indication: Systemic lupus erythematosus
     Dosage: 2.5 MG
     Route: 065
  21. MORPHINE [Suspect]
     Active Substance: MORPHINE
     Indication: Systemic lupus erythematosus
     Dosage: 20 TO 55XDAILY
     Route: 065
  22. LEVOTHYROXINE SODIUM [Concomitant]
     Active Substance: LEVOTHYROXINE SODIUM
     Indication: Product used for unknown indication
     Dosage: 1 DF, QD (50)
     Route: 065
  23. DULOXETINE [Concomitant]
     Active Substance: DULOXETINE
     Indication: Product used for unknown indication
  24. VALSARTAN [Suspect]
     Active Substance: VALSARTAN
     Indication: Systemic lupus erythematosus
     Dosage: UNK, 2X/DAY
     Route: 065
  25. LAXATAN M [Concomitant]
     Indication: Product used for unknown indication
  26. HYDROXYCHLOROQUINE [Concomitant]
     Active Substance: HYDROXYCHLOROQUINE
     Indication: Product used for unknown indication
  27. DETRUSITOL [Suspect]
     Active Substance: TOLTERODINE TARTRATE
     Indication: Systemic lupus erythematosus
     Route: 065
  28. BENLYSTA [Suspect]
     Active Substance: BELIMUMAB
     Indication: White blood cell count decreased
     Dosage: 200 MG/KG, WEEKLY
     Route: 058
     Dates: start: 201708
  29. BENLYSTA [Suspect]
     Active Substance: BELIMUMAB
     Indication: White blood cell count decreased
     Dosage: 10 MILLIGRAM/KILOGRAM, QWK
     Route: 058
  30. BENLYSTA [Suspect]
     Active Substance: BELIMUMAB
     Indication: White blood cell count decreased
     Dosage: 200 MILLIGRAM/KILOGRAM, QWK
     Route: 058
     Dates: start: 201806, end: 201807
  31. MOLSIDOMINE [Suspect]
     Active Substance: MOLSIDOMINE
     Indication: Systemic lupus erythematosus
     Dosage: 1 DF, QD (8 RET)
     Route: 065
  32. PENTACARINAT [Suspect]
     Active Substance: PENTAMIDINE ISETHIONATE
     Indication: Systemic lupus erythematosus
     Dosage: UNK
     Route: 055
     Dates: start: 201904
  33. PREDNISOLONE [Suspect]
     Active Substance: PREDNISOLONE
     Indication: Systemic lupus erythematosus
     Dosage: 5 MG, 1X/DAY
     Route: 065
     Dates: start: 1988

REACTIONS (38)
  - Peritonitis [Fatal]
  - Osteonecrosis [Unknown]
  - Anxiety disorder [Unknown]
  - Skin disorder [Unknown]
  - Thrombocytopenia [Unknown]
  - Gastritis haemorrhagic [Unknown]
  - Hypothyroidism [Unknown]
  - Drug hypersensitivity [Unknown]
  - Pancreatitis acute [Unknown]
  - Pleuritic pain [Unknown]
  - Hyperlipidaemia [Unknown]
  - Intentional product use issue [Unknown]
  - Colitis ulcerative [Unknown]
  - Off label use [Unknown]
  - Sepsis [Fatal]
  - Pulmonary sepsis [Fatal]
  - Hypertension [Unknown]
  - Urinary tract infection [Unknown]
  - Depression [Unknown]
  - Erysipelas [Unknown]
  - Herpes simplex reactivation [Unknown]
  - Antiphospholipid syndrome [Unknown]
  - Antinuclear antibody negative [Unknown]
  - Systemic lupus erythematosus [Unknown]
  - Fall [Unknown]
  - Leukopenia [Unknown]
  - Lymphopenia [Fatal]
  - Drug hypersensitivity [Unknown]
  - Pneumocystis jirovecii pneumonia [Fatal]
  - Dermatitis contact [Unknown]
  - Off label use [Unknown]
  - Noninfectious peritonitis [Unknown]
  - Complex regional pain syndrome [Unknown]
  - Gastrooesophageal reflux disease [Unknown]
  - Contusion [Unknown]
  - Pancreatitis chronic [Unknown]
  - Coombs positive haemolytic anaemia [Unknown]
  - Hyperlipidaemia [Unknown]

NARRATIVE: CASE EVENT DATE: 20190724
